FAERS Safety Report 21756290 (Version 1)
Quarter: 2022Q4

REPORT INFORMATION
  Report Type: Spontaneous
  Country: NZ (occurrence: NZ)
  Receive Date: 20221220
  Receipt Date: 20221220
  Transmission Date: 20230113
  Serious: Yes (Other)
  Sender: FDA-Public Use
  Company Number: NZ-JAZZ-2022-NZ-030997

PATIENT
  Sex: Male

DRUGS (3)
  1. ZEPZELCA [Suspect]
     Active Substance: LURBINECTEDIN
     Indication: Small cell lung cancer
     Dosage: CYCLE 1
     Route: 042
     Dates: start: 20220805, end: 2022
  2. ZEPZELCA [Suspect]
     Active Substance: LURBINECTEDIN
     Dosage: CYCLE 2
     Dates: start: 20220901
  3. ZEPZELCA [Suspect]
     Active Substance: LURBINECTEDIN
     Dosage: CYCLE 3
     Dates: start: 20220922

REACTIONS (1)
  - Drug ineffective [Unknown]

NARRATIVE: CASE EVENT DATE: 20220101
